FAERS Safety Report 9753240 (Version 2)
Quarter: 2013Q4

REPORT INFORMATION
  Report Type: Spontaneous
  Country: US (occurrence: US)
  Receive Date: 20131213
  Receipt Date: 20131213
  Transmission Date: 20140711
  Serious: No
  Sender: FDA-Public Use
  Company Number: US-GILEAD-2010-0027260

PATIENT
  Age: 61 Year
  Sex: Male
  Weight: 127.91 kg

DRUGS (29)
  1. LETAIRIS [Suspect]
     Indication: PULMONARY ARTERIAL HYPERTENSION
     Route: 048
  2. LETAIRIS [Suspect]
     Route: 048
     Dates: start: 20090302
  3. LISINOPRIL [Concomitant]
  4. PROVIGIL [Concomitant]
  5. METOPROLOL [Concomitant]
  6. FUROSEMIDE [Concomitant]
  7. ZOCOR [Concomitant]
  8. SIMVASTATIN [Concomitant]
  9. TRAZODONE [Concomitant]
  10. COUMADIN [Concomitant]
  11. BUSPAR [Concomitant]
  12. LEVOTHYROXINE [Concomitant]
  13. GABAPENTIN [Concomitant]
  14. OXYCODONE [Concomitant]
  15. VICODIN ES [Concomitant]
  16. LIBRAX [Concomitant]
  17. FOLIC ACID [Concomitant]
  18. FLEXERIL [Concomitant]
  19. LORATADINE [Concomitant]
  20. SUCRALFATE [Concomitant]
  21. TIZANIDINE [Concomitant]
  22. DIPHENOXYLATE/ATROP SUL [Concomitant]
  23. METOCLOPRAMIDE [Concomitant]
  24. RANTIDINE [Concomitant]
  25. LOPERAMIDE [Concomitant]
  26. MORPHINE [Concomitant]
  27. IPRATROPIUM BROMIDE [Concomitant]
  28. FORMOTEROL FUMARATE [Concomitant]
  29. POLYETHYLENE GLY FLAKE [Concomitant]

REACTIONS (2)
  - Dizziness [Unknown]
  - Liver function test abnormal [Recovered/Resolved]
